FAERS Safety Report 19591271 (Version 10)
Quarter: 2023Q1

REPORT INFORMATION
  Report Type: Spontaneous
  Country: ZA (occurrence: ZA)
  Receive Date: 20210721
  Receipt Date: 20230110
  Transmission Date: 20230418
  Serious: Yes (Hospitalization, Other)
  Sender: FDA-Public Use
  Company Number: ZA-LUNDBECK-DKLU3034947

PATIENT

DRUGS (9)
  1. ABILIFY [Suspect]
     Active Substance: ARIPIPRAZOLE
     Indication: Schizophrenia
     Dosage: 30 MG
     Route: 065
  2. ABILIFY [Suspect]
     Active Substance: ARIPIPRAZOLE
     Dosage: 10 MG
     Route: 065
  3. ABILIFY [Suspect]
     Active Substance: ARIPIPRAZOLE
     Dosage: OVERDOSE: 40MG OF ABILIFY
     Route: 065
  4. ARIPIPRAZOLE [Concomitant]
     Active Substance: ARIPIPRAZOLE
     Indication: Product used for unknown indication
     Dosage: 20 MG
     Route: 065
  5. RIVOTRIL [Concomitant]
     Active Substance: CLONAZEPAM
     Indication: Anxiety
     Dosage: 1 MG
     Route: 065
  6. LAMOTRIGINE [Concomitant]
     Active Substance: LAMOTRIGINE
     Indication: Product used for unknown indication
     Dosage: 200 MG
     Route: 065
  7. ECOTRIN [Concomitant]
     Active Substance: ASPIRIN
     Indication: Cerebral disorder
     Dosage: UNK
     Route: 065
  8. TELMISARTAN [Concomitant]
     Active Substance: TELMISARTAN
     Indication: Blood pressure measurement
     Dosage: 80 MG
     Route: 065
  9. ATORVASTATIN [Concomitant]
     Active Substance: ATORVASTATIN
     Indication: Blood cholesterol
     Dosage: 40 MG
     Route: 065

REACTIONS (41)
  - Hospitalisation [Unknown]
  - Autism spectrum disorder [Unknown]
  - Renal impairment [Unknown]
  - Suicidal ideation [Unknown]
  - Hyperventilation [Unknown]
  - Feeling of despair [Unknown]
  - Crying [Unknown]
  - COVID-19 [Unknown]
  - Snoring [Unknown]
  - Impaired work ability [Unknown]
  - Psychotic disorder [Unknown]
  - Heart rate irregular [Unknown]
  - Emotional poverty [Unknown]
  - Visual impairment [Unknown]
  - Mental disorder [Unknown]
  - Mood swings [Unknown]
  - Thinking abnormal [Unknown]
  - Feeling abnormal [Unknown]
  - Affect lability [Unknown]
  - Panic attack [Unknown]
  - Anger [Unknown]
  - Muscle spasms [Unknown]
  - Hypersomnia [Unknown]
  - Memory impairment [Unknown]
  - Drooling [Unknown]
  - Muscular weakness [Unknown]
  - Aggression [Unknown]
  - Blood pressure increased [Recovered/Resolved]
  - Pyrexia [Unknown]
  - Rash [Recovered/Resolved]
  - Anxiety [Unknown]
  - Fatigue [Unknown]
  - Insomnia [Recovered/Resolved]
  - Speech disorder [Unknown]
  - Weight increased [Unknown]
  - Dysphagia [Unknown]
  - Vomiting [Recovered/Resolved]
  - Chest pain [Recovered/Resolved]
  - Product dose omission issue [Unknown]
  - Overdose [Unknown]
  - Treatment noncompliance [Unknown]
